FAERS Safety Report 5245134-7 (Version None)
Quarter: 2007Q1

REPORT INFORMATION
  Report Type: 
  Country: None (occurrence: None)
  Receive Date: 20070223
  Receipt Date: 20070215
  Transmission Date: 20070707
  Serious: Yes (Hospitalization)
  Sender: FDA-Public Use
  Company Number: 2004PK02163

PATIENT
  Age: 90 Year
  Sex: Female

DRUGS (7)
  1. CANDESARTAN [Suspect]
     Indication: HYPERTENSION
     Route: 048
     Dates: start: 20041117, end: 20041129
  2. RAMIPRIL [Suspect]
     Indication: HYPERTENSION
     Route: 048
     Dates: start: 20041112, end: 20041129
  3. AMLODIPINE [Suspect]
     Indication: HYPERTENSION
     Route: 048
  4. MIRTAZAPINE [Suspect]
     Indication: DEPRESSION
     Route: 048
  5. ASPIRIN [Suspect]
     Indication: CORONARY ARTERY DISEASE
     Route: 048
  6. GLIMEPIRIDE [Suspect]
     Indication: DIABETES MELLITUS
     Route: 048
  7. ENOXAPARIN SODIUM [Concomitant]
     Route: 058
     Dates: start: 20041105, end: 20041129

REACTIONS (4)
  - CIRCULATORY COLLAPSE [None]
  - GASTROENTERITIS [None]
  - HAEMOGLOBIN DECREASED [None]
  - HAEMORRHAGE [None]
